FAERS Safety Report 15576027 (Version 1)
Quarter: 2018Q4

REPORT INFORMATION
  Report Type: Spontaneous
  Country: FR (occurrence: FR)
  Receive Date: 20181101
  Receipt Date: 20181101
  Transmission Date: 20190205
  Serious: Yes (Death)
  Sender: FDA-Public Use
  Company Number: FR-TEVA-2018-FR-971626

PATIENT
  Age: 62 Year
  Sex: Male
  Weight: 95 kg

DRUGS (25)
  1. VFEND [Suspect]
     Active Substance: VORICONAZOLE
     Indication: BRONCHOPULMONARY ASPERGILLOSIS
     Dosage: 1200 MILLIGRAM DAILY;
     Route: 042
     Dates: start: 20180919, end: 20180928
  2. PRIMPERAN [Concomitant]
     Active Substance: METOCLOPRAMIDE HYDROCHLORIDE
     Route: 065
  3. BIONOLYTE G5, SOLUTION INJECTABLE POUR PERFUSION [Concomitant]
     Route: 065
  4. DOLIPRANE [Concomitant]
     Active Substance: ACETAMINOPHEN
     Route: 065
  5. DIFFU K, G?LULE [Concomitant]
     Active Substance: POTASSIUM CHLORIDE
     Route: 065
  6. ACICLOVIR [Concomitant]
     Active Substance: ACYCLOVIR
     Route: 065
  7. TOPALGIC (TRAMADOL HYDROCHLORIDE) [Concomitant]
     Active Substance: TRAMADOL HYDROCHLORIDE
     Route: 065
  8. DIAMICRON 60 MG, COMPRIM? S?CABLE ? LIB?RATION MODIFI?E [Suspect]
     Active Substance: GLICLAZIDE
     Indication: TYPE 2 DIABETES MELLITUS
     Dosage: 1 DOSAGE FORMS DAILY;
     Route: 048
     Dates: end: 20180924
  9. IPRATROPIUM (BROMURE D^) MONOHYDRATE [Concomitant]
     Route: 065
  10. GLUCOSE [Concomitant]
     Active Substance: DEXTROSE
     Route: 065
  11. TAZOBACTAM [Concomitant]
     Active Substance: TAZOBACTAM
     Route: 065
  12. BICARBONATE DE SODIUM [Concomitant]
     Active Substance: SODIUM BICARBONATE
     Route: 065
  13. VICTOZA [Suspect]
     Active Substance: LIRAGLUTIDE
     Indication: TYPE 2 DIABETES MELLITUS
     Dosage: 1.8 MILLIGRAM DAILY;
     Route: 058
     Dates: end: 20180924
  14. KARDEGIC [Concomitant]
     Active Substance: ASPIRIN DL-LYSINE
     Route: 065
  15. MOVICOL [Concomitant]
     Active Substance: POLYETHYLENE GLYCOL 3350\POTASSIUM CHLORIDE\SODIUM BICARBONATE\SODIUM CHLORIDE
     Route: 065
  16. SEEBRI BREEZHALER 44 MICROGRAMMES, POUDRE POUR INHALATION EN G?LULE [Concomitant]
     Active Substance: GLYCOPYRROLATE
  17. ALDACTONE [Suspect]
     Active Substance: SPIRONOLACTONE
     Indication: PRODUCT USED FOR UNKNOWN INDICATION
     Dosage: 1 DOSAGE FORMS DAILY;
     Route: 048
  18. LANTUS [Suspect]
     Active Substance: INSULIN GLARGINE
     Indication: TYPE 2 DIABETES MELLITUS
     Dosage: 40 IU (INTERNATIONAL UNIT) DAILY;
     Route: 058
  19. LASILIX SPECIAL 500 MG, COMPRIM? S?CABLE [Concomitant]
     Active Substance: FUROSEMIDE
  20. ALGINATE DE SODIUM [Concomitant]
     Route: 065
  21. CLAMOXYL (AMOXICILLIN) [Concomitant]
     Active Substance: AMOXICILLIN
     Route: 065
  22. PIPERACILLINE SODIQUE [Concomitant]
     Route: 065
  23. SALBUTAMOL [Concomitant]
     Active Substance: ALBUTEROL
     Route: 065
  24. METFORMINE [Suspect]
     Active Substance: METFORMIN HYDROCHLORIDE
     Indication: TYPE 2 DIABETES MELLITUS
     Dosage: 2550 MILLIGRAM DAILY;
     Route: 048
     Dates: end: 20180924
  25. REVATIO [Suspect]
     Active Substance: SILDENAFIL CITRATE
     Indication: PULMONARY ARTERIAL HYPERTENSION
     Dosage: 3 DOSAGE FORMS DAILY;
     Route: 048

REACTIONS (10)
  - Hypotension [Fatal]
  - Cholestasis [Fatal]
  - Nausea [Fatal]
  - Hepatocellular injury [Fatal]
  - Renal failure [Fatal]
  - Oedema peripheral [Fatal]
  - Multiple organ dysfunction syndrome [Fatal]
  - Hepatic failure [Fatal]
  - Hypoglycaemia [Fatal]
  - Visual impairment [Fatal]

NARRATIVE: CASE EVENT DATE: 20180920
